FAERS Safety Report 10903768 (Version 2)
Quarter: 2015Q2

REPORT INFORMATION
  Report Type: Spontaneous
  Country: US (occurrence: None)
  Receive Date: 20150306
  Receipt Date: 20150403
  Transmission Date: 20150821
  Serious: Yes (Hospitalization)
  Sender: FDA-Public Use
  Company Number: 2015AP007017

PATIENT
  Age: 28 Year
  Sex: Male
  Weight: 73.5 kg

DRUGS (4)
  1. DESFERAL (DEFEROXAMINE MESILATE) [Concomitant]
  2. FERRIPROX [Suspect]
     Active Substance: DEFERIPRONE
     Indication: ACUTE MYELOID LEUKAEMIA
     Route: 048
     Dates: start: 20140128, end: 201403
  3. DILAUDID [Concomitant]
     Active Substance: HYDROMORPHONE HYDROCHLORIDE
  4. FERRIPROX [Suspect]
     Active Substance: DEFERIPRONE
     Indication: HAEMOCHROMATOSIS
     Route: 048
     Dates: start: 20140128, end: 201403

REACTIONS (5)
  - Small intestinal obstruction [None]
  - Abdominal distension [None]
  - Arthralgia [None]
  - Lethargy [None]
  - Burning sensation [None]

NARRATIVE: CASE EVENT DATE: 20140124
